FAERS Safety Report 6996753-9 (Version None)
Quarter: 2010Q3

REPORT INFORMATION
  Report Type: 
  Country: None (occurrence: None)
  Receive Date: 20100918
  Receipt Date: 20090616
  Transmission Date: 20110219
  Serious: No
  Sender: FDA-Public Use
  Company Number: US-WYE-H09776109

PATIENT
  Age: 38 Year
  Sex: Female

DRUGS (3)
  1. EFFEXOR XR [Suspect]
     Indication: POSTPARTUM DEPRESSION
     Route: 048
     Dates: start: 20050101, end: 20090401
  2. EFFEXOR XR [Suspect]
     Route: 048
     Dates: start: 20090401, end: 20090401
  3. EFFEXOR XR [Suspect]
     Route: 048
     Dates: start: 20090401

REACTIONS (4)
  - ABNORMAL DREAMS [None]
  - DRUG WITHDRAWAL SYNDROME [None]
  - PARAESTHESIA [None]
  - THINKING ABNORMAL [None]
